FAERS Safety Report 25688888 (Version 1)
Quarter: 2025Q3

REPORT INFORMATION
  Report Type: Spontaneous
  Country: US (occurrence: US)
  Receive Date: 20250818
  Receipt Date: 20250818
  Transmission Date: 20251021
  Serious: No
  Sender: ABBVIE
  Company Number: US-ABBVIE-6419723

PATIENT
  Age: 37 Year
  Sex: Female
  Weight: 62.595 kg

DRUGS (1)
  1. ORILISSA [Suspect]
     Active Substance: ELAGOLIX SODIUM
     Indication: Endometriosis
     Dosage: 200 MILLIGRAM
     Route: 048
     Dates: start: 20240501

REACTIONS (1)
  - Trichorrhexis [Recovering/Resolving]

NARRATIVE: CASE EVENT DATE: 20240701
